FAERS Safety Report 4374467-1 (Version None)
Quarter: 2004Q2

REPORT INFORMATION
  Report Type: 
  Country: None (occurrence: None)
  Receive Date: 20040603
  Receipt Date: 20040518
  Transmission Date: 20050107
  Serious: Yes (Hospitalization, Other)
  Sender: FDA-Public Use
  Company Number: 2004JP000516

PATIENT
  Age: 71 Year
  Sex: Male

DRUGS (8)
  1. PROGRAF [Suspect]
     Indication: MYASTHENIA GRAVIS
     Dosage: SEE IMAGE
     Route: 048
     Dates: start: 20021115, end: 20030403
  2. PROGRAF [Suspect]
     Indication: MYASTHENIA GRAVIS
     Dosage: SEE IMAGE
     Route: 048
     Dates: start: 20030404, end: 20030901
  3. PROGRAF [Suspect]
     Indication: MYASTHENIA GRAVIS
     Dosage: SEE IMAGE
     Route: 048
     Dates: start: 20030902, end: 20031201
  4. PREDNISOLONE [Concomitant]
  5. MESTINON [Concomitant]
  6. KOLANTYL (DICYCLOVERINE HYDROCHLORIDE, MAGNESIUM OXIDE, ALUMINIUM HYDR [Concomitant]
  7. ASCORBIN (ASCORBIC ACID) [Concomitant]
  8. UN-ALFA (ALFACALCIDOL) [Concomitant]

REACTIONS (4)
  - BACK PAIN [None]
  - CHOLECYSTITIS [None]
  - CHOLELITHIASIS [None]
  - VOMITING [None]
